FAERS Safety Report 10193300 (Version 1)
Quarter: 2014Q2

REPORT INFORMATION
  Report Type: Spontaneous
  Country: US (occurrence: US)
  Receive Date: 20140524
  Receipt Date: 20140524
  Transmission Date: 20141212
  Serious: No
  Sender: FDA-Public Use
  Company Number: US-SA-2013SA111580

PATIENT
  Age: 63 Year
  Sex: Female
  Weight: 74.84 kg

DRUGS (3)
  1. SOLOSTAR [Suspect]
  2. LANTUS SOLOSTAR [Suspect]
     Dosage: DOSE:20 UNIT(S)
     Route: 051
  3. ORAL ANTIDIABETICS [Concomitant]

REACTIONS (2)
  - Blood glucose increased [Unknown]
  - Drug dose omission [Unknown]
